FAERS Safety Report 10357303 (Version 1)
Quarter: 2014Q3

REPORT INFORMATION
  Report Type: Report from Study
  Country: US (occurrence: US)
  Receive Date: 20140801
  Receipt Date: 20140801
  Transmission Date: 20150326
  Serious: Yes (Hospitalization)
  Sender: FDA-Public Use
  Company Number: US-ABBVIE-14P-163-1266381-00

PATIENT
  Sex: Female

DRUGS (2)
  1. BENICAR HCT [Concomitant]
     Active Substance: HYDROCHLOROTHIAZIDE\OLMESARTAN MEDOXOMIL
     Indication: PRODUCT USED FOR UNKNOWN INDICATION
     Dosage: 40/12.5 MG
  2. HUMIRA [Suspect]
     Active Substance: ADALIMUMAB
     Indication: PSORIATIC ARTHROPATHY

REACTIONS (6)
  - Nasopharyngitis [Unknown]
  - Heart rate increased [Unknown]
  - Diarrhoea [Unknown]
  - Pancreatitis [Not Recovered/Not Resolved]
  - Chest pain [Unknown]
  - Nausea [Unknown]
